FAERS Safety Report 9276775 (Version 1)
Quarter: 2013Q2

REPORT INFORMATION
  Report Type: Spontaneous
  Country: US (occurrence: US)
  Receive Date: 20130507
  Receipt Date: 20130507
  Transmission Date: 20140414
  Serious: No
  Sender: FDA-Public Use
  Company Number: US-ASTRAZENECA-2013SE28202

PATIENT
  Sex: Female

DRUGS (12)
  1. ATENOLOL [Suspect]
     Route: 048
  2. NEXIUM [Suspect]
     Route: 048
  3. LISINOPRIL [Suspect]
     Route: 048
  4. LYRICA [Suspect]
     Indication: BACK PAIN
     Route: 048
     Dates: start: 201210, end: 20121201
  5. LYRICA [Suspect]
     Indication: ARTHRALGIA
     Route: 048
     Dates: start: 201210, end: 20121201
  6. LYRICA [Suspect]
     Indication: PAIN IN EXTREMITY
     Route: 048
     Dates: start: 201210, end: 20121201
  7. NORVASE [Concomitant]
     Indication: HYPERTENSION
  8. PROTONIX [Concomitant]
     Indication: GASTROOESOPHAGEAL REFLUX DISEASE
  9. CELEBREX [Concomitant]
     Indication: BACK PAIN
  10. CELEBREX [Concomitant]
     Indication: ARTHRALGIA
  11. VICODIN [Concomitant]
  12. TRAMADOL [Concomitant]

REACTIONS (6)
  - Gastric disorder [Recovered/Resolved]
  - Feeling abnormal [Unknown]
  - Malaise [Unknown]
  - Chest discomfort [Unknown]
  - Abdominal pain upper [Unknown]
  - Dizziness [Unknown]
